FAERS Safety Report 25425767 (Version 3)
Quarter: 2025Q3

REPORT INFORMATION
  Report Type: Spontaneous
  Country: JP (occurrence: JP)
  Receive Date: 20250611
  Receipt Date: 20250915
  Transmission Date: 20251021
  Serious: Yes (Hospitalization)
  Sender: ALEXION PHARMACEUTICALS
  Company Number: JP-ASTRAZENECA-250057448_063610_P_1

PATIENT
  Age: 65 Year
  Sex: Male

DRUGS (17)
  1. LOKELMA [Suspect]
     Active Substance: SODIUM ZIRCONIUM CYCLOSILICATE
  2. PERINDOPRIL [Concomitant]
     Active Substance: PERINDOPRIL
  3. SPIRONOLACTONE [Concomitant]
     Active Substance: SPIRONOLACTONE
  4. EMPAGLIFLOZIN [Concomitant]
     Active Substance: EMPAGLIFLOZIN
  5. AZOSEMIDE [Concomitant]
     Active Substance: AZOSEMIDE
  6. TOLVAPTAN [Concomitant]
     Active Substance: TOLVAPTAN
  7. TORSEMIDE [Concomitant]
     Active Substance: TORSEMIDE
  8. LEVOTHYROXINE [Concomitant]
     Active Substance: LEVOTHYROXINE
  9. VERICIGUAT [Concomitant]
     Active Substance: VERICIGUAT
  10. PIMOBENDAN [Concomitant]
     Active Substance: PIMOBENDAN
  11. EDOXABAN [Concomitant]
     Active Substance: EDOXABAN
  12. AMIODARONE HYDROCHLORIDE [Concomitant]
     Active Substance: AMIODARONE HYDROCHLORIDE
  13. PROCAINAMIDE HYDROCHLORIDE [Concomitant]
     Active Substance: PROCAINAMIDE HYDROCHLORIDE
  14. FEBUXOSTAT [Concomitant]
     Active Substance: FEBUXOSTAT
  15. LAFUTIDINE [Concomitant]
     Active Substance: LAFUTIDINE
  16. FOSFOMYCIN [Concomitant]
     Active Substance: FOSFOMYCIN
     Dosage: 1000 MILLIGRAM, TID
  17. DOBUTAMINE [Concomitant]
     Active Substance: DOBUTAMINE HYDROCHLORIDE
     Route: 065

REACTIONS (3)
  - Cardiac failure [Recovering/Resolving]
  - Myopericarditis [Recovering/Resolving]
  - Oedema [Unknown]
